FAERS Safety Report 22267117 (Version 1)
Quarter: 2023Q2

REPORT INFORMATION
  Report Type: Spontaneous
  Country: US (occurrence: US)
  Receive Date: 20230428
  Receipt Date: 20230428
  Transmission Date: 20230721
  Serious: No
  Sender: FDA-Public Use
  Company Number: US-BRISTOL-MYERS SQUIBB COMPANY-2023-061373

PATIENT
  Age: 56 Year
  Sex: Female
  Weight: 61.2 kg

DRUGS (1)
  1. SOTYKTU [Suspect]
     Active Substance: DEUCRAVACITINIB
     Indication: Psoriasis
     Dosage: DOSE: 30 DOSES TOTAL OVER 30 DAYS
     Route: 048
     Dates: start: 202303

REACTIONS (2)
  - Product distribution issue [Unknown]
  - Headache [Unknown]
